FAERS Safety Report 12270116 (Version 1)
Quarter: 2016Q2

REPORT INFORMATION
  Report Type: Spontaneous
  Country: US (occurrence: US)
  Receive Date: 20160415
  Receipt Date: 20160415
  Transmission Date: 20160815
  Serious: No
  Sender: FDA-Public Use
  Company Number: US-009507513-1604USA000570

PATIENT

DRUGS (1)
  1. MEVACOR [Suspect]
     Active Substance: LOVASTATIN

REACTIONS (1)
  - Hypersensitivity [Unknown]
